FAERS Safety Report 11789911 (Version 4)
Quarter: 2017Q4

REPORT INFORMATION
  Report Type: Report from Study
  Country: FR (occurrence: FR)
  Receive Date: 20151201
  Receipt Date: 20171219
  Transmission Date: 20180320
  Serious: Yes (Hospitalization, Other)
  Sender: FDA-Public Use
  Company Number: FR-SA-2015SA142692

PATIENT
  Age: 55 Year
  Sex: Female
  Weight: 58 kg

DRUGS (10)
  1. FIVASA [Concomitant]
     Active Substance: MESALAMINE
     Indication: CROHN^S DISEASE
  2. TRANXENE [Concomitant]
     Active Substance: CLORAZEPATE DIPOTASSIUM
     Indication: ANXIETY
  3. DITROPAN [Concomitant]
     Active Substance: OXYBUTYNIN CHLORIDE
     Indication: URINARY TRACT DISORDER
  4. APROVEL [Concomitant]
     Active Substance: IRBESARTAN
     Indication: HYPERTENSION
  5. SULFARLEM [Concomitant]
     Active Substance: ANETHOLTRITHION
     Indication: APTYALISM
  6. UVEDOSE [Concomitant]
     Active Substance: CHOLECALCIFEROL
     Indication: OSTEOPOROSIS
  7. TECFIDERA [Concomitant]
     Active Substance: DIMETHYL FUMARATE
  8. FLAGYL [Concomitant]
     Active Substance: METRONIDAZOLE\METRONIDAZOLE HYDROCHLORIDE
  9. AUBAGIO [Suspect]
     Active Substance: TERIFLUNOMIDE
     Route: 048
     Dates: start: 20150619, end: 20150813
  10. TECFIDERA [Concomitant]
     Active Substance: DIMETHYL FUMARATE
     Dosage: 240 MG  (120X2)

REACTIONS (3)
  - Pancreatitis acute [Recovered/Resolved]
  - Colitis ulcerative [Recovered/Resolved]
  - Cholangitis [Recovering/Resolving]

NARRATIVE: CASE EVENT DATE: 20150813
